FAERS Safety Report 9456446 (Version 1)
Quarter: 2013Q3

REPORT INFORMATION
  Report Type: Spontaneous
  Country: GB (occurrence: GB)
  Receive Date: 20130813
  Receipt Date: 20130813
  Transmission Date: 20140515
  Serious: Yes (Other)
  Sender: FDA-Public Use
  Company Number: GB-MYLANLABS-2013S1016987

PATIENT
  Age: 21 Year
  Sex: Female

DRUGS (4)
  1. TOPIRAMATE [Suspect]
     Indication: PRODUCT USED FOR UNKNOWN INDICATION
     Route: 048
     Dates: start: 20130321
  2. CLONAZEPAM [Concomitant]
     Indication: TIC
     Route: 048
     Dates: start: 20130529
  3. CLONAZEPAM [Concomitant]
     Indication: MUSCLE TWITCHING
     Route: 048
     Dates: start: 20130529
  4. DOSULEPIN [Concomitant]
     Indication: MIGRAINE
     Route: 048
     Dates: start: 20120910, end: 20130320

REACTIONS (3)
  - Dystonia [Not Recovered/Not Resolved]
  - Muscle contractions involuntary [Not Recovered/Not Resolved]
  - Muscle twitching [Not Recovered/Not Resolved]
